FAERS Safety Report 6066272-5 (Version None)
Quarter: 2009Q1

REPORT INFORMATION
  Report Type: 
  Country: None (occurrence: None)
  Receive Date: 20090130
  Receipt Date: 20090122
  Transmission Date: 20090719
  Serious: Yes (Death)
  Sender: FDA-Public Use
  Company Number: 2009-00275

PATIENT

DRUGS (3)
  1. VELCADE [Suspect]
     Indication: MULTIPLE MYELOMA
  2. MELPHALAN(MELPHALAN) [Suspect]
     Indication: MULTIPLE MYELOMA
  3. PREDNISOLONE [Suspect]
     Indication: MULTIPLE MYELOMA

REACTIONS (1)
  - DEATH [None]
